FAERS Safety Report 6875627-8 (Version None)
Quarter: 2010Q3

REPORT INFORMATION
  Report Type: 
  Country: None (occurrence: None)
  Receive Date: 20100727
  Receipt Date: 20100528
  Transmission Date: 20110219
  Serious: Yes (Other)
  Sender: FDA-Public Use
  Company Number: US-BAYER-200920323NA

PATIENT
  Sex: Female

DRUGS (1)
  1. REFLUDAN [Suspect]
     Indication: PRODUCT USED FOR UNKNOWN INDICATION
     Dosage: UNIT DOSE: 50 MG

REACTIONS (2)
  - HAEMATEMESIS [None]
  - NO ADVERSE EVENT [None]
